FAERS Safety Report 11335365 (Version 3)
Quarter: 2015Q3

REPORT INFORMATION
  Report Type: Spontaneous
  Country: GB (occurrence: GB)
  Receive Date: 20150804
  Receipt Date: 20150904
  Transmission Date: 20151125
  Serious: Yes (Other)
  Sender: FDA-Public Use
  Company Number: GB-AUROBINDO-AUR-APL-2015-06854

PATIENT

DRUGS (6)
  1. PHENYTOIN. [Suspect]
     Active Substance: PHENYTOIN
     Indication: EPILEPSY
     Dosage: 350 MILLIGRAM DAILY;
     Route: 065
  2. PHENYTOIN. [Suspect]
     Active Substance: PHENYTOIN
     Dosage: 350 MILLIGRAM DAILY;
     Route: 065
  3. PHENYTOIN. [Suspect]
     Active Substance: PHENYTOIN
     Dosage: 400 MILLIGRAM DAILY;
     Route: 065
  4. PHENYTOIN. [Suspect]
     Active Substance: PHENYTOIN
     Dosage: 400 MILLIGRAM DAILY;
     Route: 065
  5. PHENYTOIN. [Suspect]
     Active Substance: PHENYTOIN
     Dosage: 350 MILLIGRAM DAILY;
     Route: 065
  6. PHENYTOIN. [Suspect]
     Active Substance: PHENYTOIN
     Dosage: 400 MILLIGRAM DAILY;
     Route: 065

REACTIONS (7)
  - Alanine aminotransferase increased [Unknown]
  - Blood testosterone increased [Unknown]
  - Adverse event [Unknown]
  - Epilepsy [Unknown]
  - Liver function test abnormal [Unknown]
  - Therapy change [Unknown]
  - Drug ineffective [Unknown]
